FAERS Safety Report 16352529 (Version 3)
Quarter: 2019Q2

REPORT INFORMATION
  Report Type: Spontaneous
  Country: BR (occurrence: BR)
  Receive Date: 20190524
  Receipt Date: 20190529
  Transmission Date: 20190711
  Serious: Yes (Death, Hospitalization)
  Sender: FDA-Public Use
  Company Number: BR-CELGENEUS-BRA-20190507733

PATIENT
  Age: 62 Year
  Sex: Male

DRUGS (1)
  1. VIDAZA [Suspect]
     Active Substance: AZACITIDINE
     Indication: MYELODYSPLASTIC SYNDROME
     Route: 058
     Dates: start: 20180307

REACTIONS (8)
  - Infection [Unknown]
  - Drug ineffective [Unknown]
  - Seizure [Unknown]
  - Haemorrhagic stroke [Unknown]
  - Constipation [Unknown]
  - Cardio-respiratory arrest [Fatal]
  - Acute myeloid leukaemia [Unknown]
  - Gastrointestinal carcinoma [Unknown]

NARRATIVE: CASE EVENT DATE: 201806
